FAERS Safety Report 7488278-1 (Version None)
Quarter: 2011Q2

REPORT INFORMATION
  Report Type: 
  Country: None (occurrence: None)
  Receive Date: 20110511
  Receipt Date: 20110425
  Transmission Date: 20111010
  Serious: Yes (Other)
  Sender: FDA-Public Use
  Company Number: 031596

PATIENT
  Sex: Female
  Weight: 95.3 kg

DRUGS (7)
  1. LACOSAMIDE [Suspect]
     Indication: EPILEPSY
     Dosage: (100 MG BID ORAL)
     Route: 048
     Dates: start: 20110412, end: 20110421
  2. LACOSAMIDE [Suspect]
     Indication: PETIT MAL EPILEPSY
     Dosage: (100 MG BID ORAL)
     Route: 048
     Dates: start: 20110412, end: 20110421
  3. ETHINYLESTRADIO W/NORETHINDRONE [Concomitant]
  4. HYDROCHLOROTHIAZIDE [Concomitant]
  5. LEVOTHYROXINE SODIUM [Concomitant]
  6. TRAZODONE HCL [Concomitant]
  7. FOLIC ACID [Concomitant]

REACTIONS (7)
  - DIZZINESS [None]
  - FEELING ABNORMAL [None]
  - DIPLOPIA [None]
  - DEJA VU [None]
  - CONVULSION [None]
  - GAIT DISTURBANCE [None]
  - PILOERECTION [None]
